FAERS Safety Report 14725990 (Version 1)
Quarter: 2018Q2

REPORT INFORMATION
  Report Type: Spontaneous
  Country: TR (occurrence: TR)
  Receive Date: 20180406
  Receipt Date: 20180406
  Transmission Date: 20180711
  Serious: Yes (Other)
  Sender: FDA-Public Use
  Company Number: TR-BIOGEN-2018BI00551968

PATIENT
  Age: 3 Year
  Sex: Male

DRUGS (2)
  1. AVONEX [Suspect]
     Active Substance: INTERFERON BETA-1A
     Indication: SUBACUTE SCLEROSING PANENCEPHALITIS
     Route: 030
  2. ISOPRINOSINE [Concomitant]
     Active Substance: INOSINE PRANOBEX
     Indication: SUBACUTE SCLEROSING PANENCEPHALITIS
     Dosage: 2 DOSES
     Route: 048

REACTIONS (1)
  - Loss of consciousness [Unknown]
